FAERS Safety Report 6159475-2 (Version None)
Quarter: 2009Q2

REPORT INFORMATION
  Report Type: 
  Country: None (occurrence: None)
  Receive Date: 20090418
  Receipt Date: 20090403
  Transmission Date: 20091009
  Serious: Yes (Death, Other)
  Sender: FDA-Public Use
  Company Number: US-ROCHE-621165

PATIENT
  Age: 57 Year
  Sex: Male

DRUGS (5)
  1. CELLCEPT [Suspect]
     Indication: VASCULITIS
     Route: 048
     Dates: start: 20080101, end: 20090312
  2. PREDNISONE [Concomitant]
     Indication: INFECTION
  3. STATIN [Concomitant]
     Indication: HYPERCHOLESTEROLAEMIA
  4. INSULIN [Concomitant]
  5. ASPIRIN [Concomitant]

REACTIONS (2)
  - BRAIN STEM INFARCTION [None]
  - DEAFNESS BILATERAL [None]
